FAERS Safety Report 10187066 (Version 2)
Quarter: 2014Q2

REPORT INFORMATION
  Report Type: Report from Study
  Country: CA (occurrence: CA)
  Receive Date: 20140522
  Receipt Date: 20140522
  Transmission Date: 20141212
  Serious: Yes (Hospitalization)
  Sender: FDA-Public Use
  Company Number: CA-BRISTOL-MYERS SQUIBB COMPANY-20627212

PATIENT
  Age: 69 Year
  Sex: Male

DRUGS (4)
  1. ORENCIA [Suspect]
     Indication: RHEUMATOID ARTHRITIS
     Dosage: 1DF=750 UNITS NOS?BATCH NO. 3F76196?MISSED INFUSION ON 06MAY14
     Dates: start: 20120829
  2. METHOTREXATE [Concomitant]
  3. PREDNISONE [Concomitant]
     Dosage: DECREASED GRADUALLY
  4. GABAPENTIN [Concomitant]

REACTIONS (3)
  - Cardiac pacemaker insertion [Unknown]
  - Vertigo [Unknown]
  - Pruritus [Unknown]
